FAERS Safety Report 25135844 (Version 2)
Quarter: 2025Q3

REPORT INFORMATION
  Report Type: Spontaneous
  Country: EU (occurrence: EU)
  Receive Date: 20250328
  Receipt Date: 20250804
  Transmission Date: 20251021
  Serious: Yes (Other)
  Sender: ALEXION PHARMACEUTICALS
  Company Number: EU-002147023-NVSC2025PL045546

PATIENT
  Age: 60 Year
  Sex: Female

DRUGS (3)
  1. FULVESTRANT [Suspect]
     Active Substance: FULVESTRANT
     Indication: HER2 negative breast cancer
     Route: 065
  2. FULVESTRANT [Suspect]
     Active Substance: FULVESTRANT
  3. KISQALI [Suspect]
     Active Substance: RIBOCICLIB SUCCINATE
     Indication: HER2 negative breast cancer
     Dosage: 600 MG, QD, (DAILY FOR 21 DAYS, THEN A 7-DAY BREAK; DURATION OF ONE CYCLE ? 28 DAYS)
     Route: 065
     Dates: start: 20230518

REACTIONS (9)
  - Neutropenia [Unknown]
  - Malignant neoplasm oligoprogression [Unknown]
  - Rectal cancer [Unknown]
  - HER2 negative breast cancer [Unknown]
  - Malignant neoplasm progression [Unknown]
  - Metastases to bone [Unknown]
  - Pulmonary mass [Unknown]
  - Osteolysis [Unknown]
  - Neutropenia [Unknown]

NARRATIVE: CASE EVENT DATE: 20240124
